FAERS Safety Report 8950264 (Version 8)
Quarter: 2013Q2

REPORT INFORMATION
  Report Type: Report from Study
  Country: CA (occurrence: CA)
  Receive Date: 20121205
  Receipt Date: 20130516
  Transmission Date: 20140414
  Serious: Yes (Death, Hospitalization, Other)
  Sender: FDA-Public Use
  Company Number: PHHY2012CA104781

PATIENT
  Age: 64 Year
  Sex: Male

DRUGS (3)
  1. SANDOSTATIN LAR [Suspect]
     Indication: METASTATIC CARCINOID TUMOUR
     Dosage: 30 MG, ONCE A MONTH
     Route: 030
     Dates: start: 20111012
  2. SANDOSTATIN LAR [Suspect]
     Dosage: 40 MG, EVERY 3 WEEKS
     Route: 030
  3. SANDOSTATIN LAR [Suspect]
     Dosage: 20 MG, EVERY 4 WEEKS
     Route: 030
     Dates: end: 20130424

REACTIONS (10)
  - Death [Fatal]
  - Pain [Unknown]
  - Terminal state [Unknown]
  - Malignant neoplasm progression [Unknown]
  - Hyperhidrosis [Recovering/Resolving]
  - Blood pressure increased [Unknown]
  - Flushing [Recovering/Resolving]
  - Nuclear magnetic resonance imaging abnormal [Unknown]
  - Blood pressure systolic increased [Unknown]
  - Diarrhoea [Recovering/Resolving]
